FAERS Safety Report 20899691 (Version 3)
Quarter: 2022Q2

REPORT INFORMATION
  Report Type: Spontaneous
  Country: JP (occurrence: JP)
  Receive Date: 20220601
  Receipt Date: 20220623
  Transmission Date: 20220721
  Serious: Yes (Life-Threatening, Hospitalization, Other)
  Sender: FDA-Public Use
  Company Number: JP-CHUGAI-2022017876

PATIENT
  Age: 66 Year
  Sex: Male
  Weight: 52.1 kg

DRUGS (16)
  1. HEMLIBRA [Suspect]
     Active Substance: EMICIZUMAB-KXWH
     Indication: Haemophilia A with anti factor VIII
     Dosage: 150 MILLIGRAM, ONCE/WEEK?LOADING DOSE
     Route: 058
     Dates: start: 20200803, end: 20200824
  2. HEMLIBRA [Suspect]
     Active Substance: EMICIZUMAB-KXWH
     Dosage: 60 MILLIGRAM, ONCE/WEEK?MAINTENANCE DOSE
     Route: 058
     Dates: start: 20200831
  3. BYCLOT [Suspect]
     Active Substance: COAGULATION FACTOR VII HUMAN\COAGULATION FACTOR X HUMAN
     Indication: Product used for unknown indication
     Dosage: 4.5 MILLIGRAM, SINGLE
     Route: 041
     Dates: start: 20220518, end: 20220518
  4. PRECEDEX [Suspect]
     Active Substance: DEXMEDETOMIDINE HYDROCHLORIDE
     Indication: Product used for unknown indication
     Dosage: UNK
     Route: 065
  5. NOVOSEVEN [Suspect]
     Active Substance: COAGULATION FACTOR VIIA RECOMBINANT HUMAN
     Indication: Haemobilia
     Dosage: 5 MILLIGRAM
     Route: 041
     Dates: start: 20200929
  6. NOVOSEVEN [Suspect]
     Active Substance: COAGULATION FACTOR VIIA RECOMBINANT HUMAN
     Indication: Haemostasis
     Dosage: 5 MILLIGRAM
     Route: 041
     Dates: start: 20220506, end: 20220510
  7. NOVOSEVEN [Suspect]
     Active Substance: COAGULATION FACTOR VIIA RECOMBINANT HUMAN
     Dosage: 5 MILLIGRAM
     Route: 041
     Dates: start: 20220516, end: 20220526
  8. VOGLIBOSE [Concomitant]
     Active Substance: VOGLIBOSE
     Indication: Diabetes mellitus
     Dosage: 0.3MG/DAY
     Route: 048
  9. TRESIBA [Concomitant]
     Active Substance: INSULIN DEGLUDEC
     Indication: Diabetes mellitus
     Dosage: UNK
     Route: 065
  10. VICTOZA [Concomitant]
     Active Substance: LIRAGLUTIDE
     Indication: Diabetes mellitus
     Dosage: UNK
     Route: 058
  11. NOVORAPID [Concomitant]
     Active Substance: INSULIN ASPART
     Indication: Diabetes mellitus
     Dosage: UNK
     Route: 065
  12. LEVETIRACETAM [Concomitant]
     Active Substance: LEVETIRACETAM
     Dosage: UNK
     Route: 048
  13. TELMISARTAN [Concomitant]
     Active Substance: TELMISARTAN
     Indication: Hypertension
     Dosage: 80MG/DAY
     Route: 065
  14. BENIDIPINE HYDROCHLORIDE [Concomitant]
     Active Substance: BENIDIPINE HYDROCHLORIDE
     Indication: Hypertension
     Dosage: 4MG/DAY
     Route: 065
  15. BISOPROLOL FUMARATE [Concomitant]
     Active Substance: BISOPROLOL FUMARATE
     Indication: Hypertension
     Dosage: 1.25MG/DAY
     Route: 065
  16. AMLODIPINE BESYLATE [Concomitant]
     Active Substance: AMLODIPINE BESYLATE
     Indication: Hypertension
     Dosage: 2.5MG/DAY
     Route: 065

REACTIONS (10)
  - Cerebral infarction [Recovered/Resolved]
  - Shunt infection [Unknown]
  - Activated partial thromboplastin time prolonged [Unknown]
  - Staphylococcal bacteraemia [Recovering/Resolving]
  - Haemobilia [Recovering/Resolving]
  - Cholangitis [Recovered/Resolved]
  - Bile duct stone [Recovered/Resolved]
  - Platelet count decreased [Recovered/Resolved]
  - Dyslalia [Recovered/Resolved]
  - Activated partial thromboplastin time prolonged [Recovered/Resolved]

NARRATIVE: CASE EVENT DATE: 20200929
